FAERS Safety Report 6276528-9 (Version None)
Quarter: 2009Q3

REPORT INFORMATION
  Report Type: 
  Country: None (occurrence: None)
  Receive Date: 20090722
  Receipt Date: 19720712
  Transmission Date: 20100115
  Serious: No
  Sender: FDA-Public Use
  Company Number: US-BRISTOL-MYERS SQUIBB COMPANY-11064482

PATIENT
  Age: 34 Year
  Sex: Female
  Weight: 70 kg

DRUGS (2)
  1. COUMADIN [Suspect]
     Indication: PULMONARY INFARCTION
     Dosage: 7.5-12.5 MG DAILY
     Route: 048
     Dates: start: 19720401, end: 19720701
  2. HEPARIN [Concomitant]
     Dosage: 10000 UNIT AES#DOSE_FREQUENCY: EVERY 4 HOURS
     Route: 042
     Dates: start: 19720129, end: 19720401

REACTIONS (1)
  - ALOPECIA [None]
